FAERS Safety Report 5381027-2 (Version None)
Quarter: 2007Q2

REPORT INFORMATION
  Report Type: 
  Country: None (occurrence: None)
  Receive Date: 20070629
  Receipt Date: 20061114
  Transmission Date: 20071010
  Serious: Yes (Hospitalization)
  Sender: FDA-Public Use
  Company Number: US200611003192

PATIENT
  Age: 40 Year
  Sex: Female
  Weight: 61.8 kg

DRUGS (2)
  1. HUMALOG [Suspect]
     Dosage: AS NEEDED TID AC
  2. LANTUS [Concomitant]

REACTIONS (1)
  - DIABETIC KETOACIDOSIS [None]
